FAERS Safety Report 10930006 (Version 1)
Quarter: 2015Q1

REPORT INFORMATION
  Report Type: Spontaneous
  Country: US (occurrence: None)
  Receive Date: 20150318
  Receipt Date: 20150318
  Transmission Date: 20150721
  Serious: No
  Sender: FDA-Public Use
  Company Number: None

PATIENT
  Age: 69 Year
  Sex: Female

DRUGS (5)
  1. LEVOFLOXACIN 500MG [Suspect]
     Active Substance: LEVOFLOXACIN
     Indication: MASTOIDITIS
     Dosage: ONE TABLET
     Dates: start: 20141023, end: 20141029
  2. NEURONTIN [Concomitant]
     Active Substance: GABAPENTIN
  3. MVI [Concomitant]
     Active Substance: VITAMINS
  4. CIPROFLOXACIN. [Suspect]
     Active Substance: CIPROFLOXACIN
     Indication: INFLUENZA
     Dosage: ONE TABLET
     Dates: start: 20140213, end: 20140223
  5. MAGNESIUM [Concomitant]
     Active Substance: MAGNESIUM

REACTIONS (8)
  - Insomnia [None]
  - Musculoskeletal pain [None]
  - Back pain [None]
  - Myalgia [None]
  - Memory impairment [None]
  - Arthralgia [None]
  - Pain in extremity [None]
  - Headache [None]

NARRATIVE: CASE EVENT DATE: 20141023
